FAERS Safety Report 9894582 (Version 2)
Quarter: 2014Q1

REPORT INFORMATION
  Report Type: Spontaneous
  Country: US (occurrence: US)
  Receive Date: 20140213
  Receipt Date: 20140213
  Transmission Date: 20141002
  Serious: Yes (Other)
  Sender: FDA-Public Use
  Company Number: PHHY2010US11587

PATIENT
  Age: 63 Year
  Sex: Female

DRUGS (24)
  1. XOLAIR [Suspect]
     Indication: ASTHMA
     Dosage: 3 INJECTIONS
     Route: 058
     Dates: start: 20100301, end: 20100301
  2. DIOVAN [Suspect]
     Dosage: UNK
  3. LOTREL [Suspect]
     Dosage: UNK
  4. NORTRIPTYLINE [Suspect]
     Dosage: UNK
  5. FIORICET [Suspect]
     Dosage: UNK
  6. ATENOLOL [Suspect]
     Dosage: UNK
  7. NIFEDIPINE [Suspect]
     Dosage: UNK
  8. CLONIDINE [Suspect]
     Dosage: UNK
  9. HYDRALAZINE [Suspect]
     Dosage: UNK
  10. CARDIZEM [Suspect]
     Dosage: UNK
  11. BUSPAR [Suspect]
     Dosage: UNK
  12. TRAZODONE [Suspect]
     Dosage: UNK
  13. LASIX [Suspect]
     Dosage: UNK
  14. DARVOCET-N [Suspect]
     Dosage: UNK
  15. BABY ASPIRIN [Concomitant]
     Dosage: UNK
  16. POTASSIUM [Concomitant]
     Dosage: UNK
  17. BUDESONIDE [Concomitant]
     Dosage: UNK
  18. BROVANA [Concomitant]
     Dosage: UNK
  19. ALBUTEROL [Concomitant]
     Dosage: UNK
  20. QVAR [Concomitant]
     Dosage: UNK
  21. CARVEDILOL [Concomitant]
     Dosage: UNK
  22. ASPIRIN [Concomitant]
     Dosage: UNK
  23. LOVASTATIN [Concomitant]
     Dosage: UNK
  24. FLUTICASONE [Concomitant]
     Dosage: UNK

REACTIONS (2)
  - Oedema peripheral [Unknown]
  - Nausea [Unknown]
